FAERS Safety Report 15640748 (Version 1)
Quarter: 2018Q4

REPORT INFORMATION
  Report Type: Spontaneous
  Country: US (occurrence: US)
  Receive Date: 20181120
  Receipt Date: 20181120
  Transmission Date: 20190205
  Serious: No
  Sender: FDA-Public Use
  Company Number: US-BAYER-2018-215283

PATIENT

DRUGS (2)
  1. BETASERON [Suspect]
     Active Substance: INTERFERON BETA-1B
     Dosage: UNK
  2. BETACONNECT [Suspect]
     Active Substance: DEVICE
     Dosage: UNK

REACTIONS (2)
  - Product dose omission [None]
  - Device malfunction [None]
